FAERS Safety Report 6872429-3 (Version None)
Quarter: 2010Q3

REPORT INFORMATION
  Report Type: 
  Country: None (occurrence: None)
  Receive Date: 20100723
  Receipt Date: 20081003
  Transmission Date: 20110219
  Serious: Yes (Other)
  Sender: FDA-Public Use
  Company Number: US-PFIZER INC-2008080181

PATIENT
  Sex: Female

DRUGS (1)
  1. CHANTIX [Suspect]
     Indication: SMOKING CESSATION THERAPY
     Route: 048
     Dates: start: 20080714

REACTIONS (8)
  - ASTHENIA [None]
  - DEPRESSED MOOD [None]
  - DEPRESSION [None]
  - DRUG DOSE OMISSION [None]
  - NAUSEA [None]
  - NERVOUSNESS [None]
  - REGURGITATION [None]
  - SUICIDAL IDEATION [None]
